FAERS Safety Report 8294756-8 (Version None)
Quarter: 2012Q2

REPORT INFORMATION
  Report Type: 
  Country: None (occurrence: None)
  Receive Date: 20120418
  Receipt Date: 20120409
  Transmission Date: 20120825
  Serious: Yes (Hospitalization, Disabling)
  Sender: FDA-Public Use
  Company Number: JP-SANOFI-AVENTIS-2012SA015282

PATIENT
  Age: 71 Year
  Sex: Female
  Weight: 55 kg

DRUGS (8)
  1. DOXAZOSIN MESYLATE [Concomitant]
     Indication: HYPERTENSION
     Route: 048
     Dates: start: 20100311, end: 20111111
  2. FLUTICASONE PROPIONATE [Concomitant]
     Indication: ASTHMA
     Route: 055
     Dates: start: 20110516
  3. PLAVIX [Suspect]
     Indication: CEREBRAL INFARCTION
     Route: 048
     Dates: start: 20100325, end: 20111111
  4. ZOLPIDEM [Suspect]
     Route: 048
     Dates: start: 20100826
  5. PRAVASTATIN [Concomitant]
     Indication: LIPID METABOLISM DISORDER
     Route: 048
     Dates: end: 20111111
  6. ALLOPURINOL [Concomitant]
     Route: 048
     Dates: end: 20120304
  7. ITAVASTATIN [Concomitant]
     Indication: LIPID METABOLISM DISORDER
     Route: 048
     Dates: start: 20111125
  8. UNIPHYL [Concomitant]
     Indication: ASTHMA
     Route: 048
     Dates: start: 20110509, end: 20120229

REACTIONS (1)
  - THALAMUS HAEMORRHAGE [None]
